FAERS Safety Report 13986558 (Version 1)
Quarter: 2017Q3

REPORT INFORMATION
  Report Type: Spontaneous
  Country: CN (occurrence: CN)
  Receive Date: 20170919
  Receipt Date: 20170919
  Transmission Date: 20171128
  Serious: Yes (Other)
  Sender: FDA-Public Use
  Company Number: CN-ASTRAZENECA-2017SE95083

PATIENT
  Sex: Male
  Weight: 30 kg

DRUGS (12)
  1. TERBUTALINE SULFATE. [Suspect]
     Active Substance: TERBUTALINE SULFATE
     Indication: BRONCHITIS
     Route: 055
     Dates: start: 20170525, end: 20170526
  2. BUDESONIDE. [Suspect]
     Active Substance: BUDESONIDE
     Indication: BRONCHITIS
     Route: 055
     Dates: start: 20170525, end: 20170526
  3. CEFACLOR. [Suspect]
     Active Substance: CEFACLOR
     Indication: PNEUMONIA
     Route: 048
     Dates: start: 20170525, end: 20170526
  4. BUDESONIDE. [Suspect]
     Active Substance: BUDESONIDE
     Indication: PNEUMONIA
     Route: 055
     Dates: start: 20170525, end: 20170526
  5. LORATADINE. [Concomitant]
     Active Substance: LORATADINE
     Indication: BRONCHITIS
     Route: 048
     Dates: start: 20170525, end: 20170526
  6. ACETYLCYSTEINE. [Concomitant]
     Active Substance: ACETYLCYSTEINE
     Indication: BRONCHITIS
     Route: 048
     Dates: start: 20170525, end: 20170526
  7. SODIUM CHLORIDE. [Concomitant]
     Active Substance: SODIUM CHLORIDE
     Indication: PNEUMONIA
     Route: 055
     Dates: start: 20170525, end: 20170526
  8. CEFACLOR. [Suspect]
     Active Substance: CEFACLOR
     Indication: BRONCHITIS
     Route: 048
     Dates: start: 20170525, end: 20170526
  9. ACETYLCYSTEINE. [Concomitant]
     Active Substance: ACETYLCYSTEINE
     Indication: PNEUMONIA
     Route: 048
     Dates: start: 20170525, end: 20170526
  10. SODIUM CHLORIDE. [Concomitant]
     Active Substance: SODIUM CHLORIDE
     Indication: BRONCHITIS
     Route: 055
     Dates: start: 20170525, end: 20170526
  11. LORATADINE. [Concomitant]
     Active Substance: LORATADINE
     Indication: PNEUMONIA
     Route: 048
     Dates: start: 20170525, end: 20170526
  12. TERBUTALINE SULFATE. [Suspect]
     Active Substance: TERBUTALINE SULFATE
     Indication: PNEUMONIA
     Route: 055
     Dates: start: 20170525, end: 20170526

REACTIONS (3)
  - Pruritus [Recovering/Resolving]
  - Rash maculo-papular [Recovering/Resolving]
  - Flushing [Recovering/Resolving]
